FAERS Safety Report 7524805-3 (Version None)
Quarter: 2011Q2

REPORT INFORMATION
  Report Type: 
  Country: None (occurrence: None)
  Receive Date: 20110606
  Receipt Date: 20110527
  Transmission Date: 20111010
  Serious: Yes (Hospitalization, Disabling)
  Sender: FDA-Public Use
  Company Number: GB-PFIZER INC-2011115016

PATIENT
  Age: 73 Year
  Sex: Female

DRUGS (6)
  1. ESTRING [Suspect]
     Dosage: UNK
     Dates: start: 20040101
  2. ENOXAPARIN [Concomitant]
     Indication: THROMBOSIS PROPHYLAXIS
     Dosage: 114 MG, UNK
  3. CANDESARTAN [Concomitant]
  4. HEPARIN [Concomitant]
  5. SIMVASTATIN [Concomitant]
  6. LANSOPRAZOLE [Concomitant]

REACTIONS (2)
  - FOOT OPERATION [None]
  - DEEP VEIN THROMBOSIS [None]
